FAERS Safety Report 4335357-3 (Version None)
Quarter: 2004Q2

REPORT INFORMATION
  Report Type: 
  Country: None (occurrence: None)
  Receive Date: 20040409
  Receipt Date: 20040303
  Transmission Date: 20050107
  Serious: Yes (Hospitalization)
  Sender: FDA-Public Use
  Company Number: 200410474DE

PATIENT
  Age: 82 Year
  Sex: Female

DRUGS (11)
  1. AMARYL [Suspect]
     Indication: DIABETES MELLITUS
     Route: 048
     Dates: end: 20031108
  2. ARELIX [Suspect]
     Indication: HYPERTENSION
     Route: 048
     Dates: end: 20031108
  3. NOVALGIN [Concomitant]
     Indication: PAIN
     Dosage: FREQUENCY: IRREGULAR
     Route: 048
     Dates: start: 20031001, end: 20031108
  4. ACCUPRO [Suspect]
     Indication: HYPERTENSION
     Route: 048
     Dates: end: 20031108
  5. VIOXX [Suspect]
     Indication: PAIN
     Route: 048
     Dates: start: 20030801, end: 20031108
  6. ACICLOSTAD [Concomitant]
     Indication: HERPES ZOSTER
     Route: 048
     Dates: start: 20031001, end: 20031108
  7. ALPHA-LIPONSAURE [Concomitant]
     Indication: POLYNEUROPATHY
     Route: 048
     Dates: end: 20031108
  8. ATARAX [Concomitant]
     Indication: RESTLESSNESS
     Route: 048
     Dates: end: 20031108
  9. BISOPROLOL [Concomitant]
     Indication: HYPERTENSION
     Route: 048
     Dates: end: 20031108
  10. MYDOCALM [Concomitant]
     Indication: PAIN
     Route: 048
     Dates: start: 20031001, end: 20031108
  11. PROCAIN [Concomitant]
     Indication: PAIN
     Route: 042
     Dates: end: 20031104

REACTIONS (8)
  - ABDOMINAL PAIN [None]
  - DRUG INTERACTION [None]
  - ELECTROLYTE IMBALANCE [None]
  - HYPERTENSION [None]
  - INAPPROPRIATE ANTIDIURETIC HORMONE SECRETION [None]
  - OEDEMA PERIPHERAL [None]
  - OESOPHAGEAL CANDIDIASIS [None]
  - VOMITING [None]
